FAERS Safety Report 19029740 (Version 2)
Quarter: 2021Q2

REPORT INFORMATION
  Report Type: Spontaneous
  Country: JP (occurrence: JP)
  Receive Date: 20210319
  Receipt Date: 20210618
  Transmission Date: 20210717
  Serious: Yes (Hospitalization, Other)
  Sender: FDA-Public Use
  Company Number: JP-EXELIXIS-CABO-21038671

PATIENT
  Age: 78 Year
  Sex: Female

DRUGS (1)
  1. CABOMETYX [Suspect]
     Active Substance: CABOZANTINIB S-MALATE
     Indication: RENAL CELL CARCINOMA
     Dosage: 40 MG
     Route: 048
     Dates: start: 20201127, end: 20210212

REACTIONS (6)
  - Disease progression [Not Recovered/Not Resolved]
  - Renal cell carcinoma [Not Recovered/Not Resolved]
  - Oesophageal perforation [Not Recovered/Not Resolved]
  - Inappropriate antidiuretic hormone secretion [Recovering/Resolving]
  - Metastases to lung [Unknown]
  - Anaemia [Recovering/Resolving]

NARRATIVE: CASE EVENT DATE: 202101
